FAERS Safety Report 5302653-2 (Version None)
Quarter: 2007Q2

REPORT INFORMATION
  Report Type: 
  Country: None (occurrence: None)
  Receive Date: 20070419
  Receipt Date: 20070409
  Transmission Date: 20071010
  Serious: Yes (Other)
  Sender: FDA-Public Use
  Company Number: US-AMGEN-STX218530

PATIENT
  Sex: Female

DRUGS (7)
  1. ENBREL [Suspect]
     Indication: RHEUMATOID ARTHRITIS
     Route: 065
     Dates: start: 20061001
  2. AZULFIDINE [Concomitant]
     Route: 065
  3. MOTRIN [Concomitant]
     Route: 065
  4. SELENIUM SULFIDE [Concomitant]
     Route: 065
  5. VITAMIN CAP [Concomitant]
     Route: 065
  6. FISH OIL [Concomitant]
     Route: 065
  7. COENZYME Q10 [Concomitant]
     Route: 065

REACTIONS (2)
  - ALOPECIA [None]
  - HEPATIC ENZYME INCREASED [None]
